FAERS Safety Report 6612441-2 (Version None)
Quarter: 2010Q1

REPORT INFORMATION
  Report Type: 
  Country: None (occurrence: None)
  Receive Date: 20100303
  Receipt Date: 20100219
  Transmission Date: 20100710
  Serious: Yes (Life-Threatening)
  Sender: FDA-Public Use
  Company Number: NO-WYE-H13775110

PATIENT
  Sex: Female

DRUGS (2)
  1. SOMAC [Suspect]
     Indication: OESOPHAGITIS
     Dates: start: 20070101
  2. TIMOLOL MALEATE [Concomitant]
     Dosage: UNKNOWN

REACTIONS (3)
  - CONGESTIVE CARDIOMYOPATHY [None]
  - HYPOTENSION [None]
  - MYALGIA [None]
